FAERS Safety Report 24814678 (Version 1)
Quarter: 2025Q1

REPORT INFORMATION
  Report Type: Spontaneous
  Country: CA (occurrence: CA)
  Receive Date: 20250107
  Receipt Date: 20250107
  Transmission Date: 20250408
  Serious: Yes (Life-Threatening, Hospitalization)
  Sender: LGM PHARMA SOLUTIONS, LLC
  Company Number: CA-LGM Pharma Solutions, LLC-2168517

PATIENT
  Age: 6 Month
  Sex: Male

DRUGS (1)
  1. CHENODAL [Suspect]
     Active Substance: CHENODIOL
     Indication: Lipid metabolism disorder

REACTIONS (2)
  - Drug-induced liver injury [Not Recovered/Not Resolved]
  - Acute hepatic failure [Not Recovered/Not Resolved]
